FAERS Safety Report 5370357-6 (Version None)
Quarter: 2007Q2

REPORT INFORMATION
  Report Type: 
  Country: None (occurrence: None)
  Receive Date: 20070626
  Receipt Date: 20070619
  Transmission Date: 20071010
  Serious: Yes (Death, Other)
  Sender: FDA-Public Use
  Company Number: BR-BRISTOL-MYERS SQUIBB COMPANY-13816517

PATIENT

DRUGS (4)
  1. MITOMYCIN-C BULK POWDER [Suspect]
     Indication: ANAL CANCER
  2. CISPLATIN [Suspect]
  3. FLUOROURACIL [Suspect]
     Indication: ANAL CANCER
  4. RADIATION THERAPY [Suspect]
     Indication: ANAL CANCER

REACTIONS (9)
  - ANORECTAL DISORDER [None]
  - DIARRHOEA [None]
  - DYSURIA [None]
  - FEBRILE NEUTROPENIA [None]
  - LEUKOPENIA [None]
  - MALIGNANT NEOPLASM PROGRESSION [None]
  - PALMAR-PLANTAR ERYTHRODYSAESTHESIA SYNDROME [None]
  - TOXIC SKIN ERUPTION [None]
  - VOMITING [None]
